FAERS Safety Report 21271952 (Version 1)
Quarter: 2022Q3

REPORT INFORMATION
  Report Type: Report from Study
  Country: BR (occurrence: BR)
  Receive Date: 20220830
  Receipt Date: 20220830
  Transmission Date: 20221027
  Serious: Yes (Hospitalization, Disabling, Other)
  Sender: FDA-Public Use
  Company Number: BR-ABBVIE-22K-020-4520873-00

PATIENT
  Age: 65 Year
  Sex: Female
  Weight: 80 kg

DRUGS (2)
  1. RINVOQ [Suspect]
     Active Substance: UPADACITINIB
     Indication: Rheumatoid arthritis
     Route: 048
  2. LOSARTAN [Concomitant]
     Active Substance: LOSARTAN
     Indication: Hypertension

REACTIONS (6)
  - Upper limb fracture [Recovering/Resolving]
  - Fall [Recovering/Resolving]
  - Mobility decreased [Not Recovered/Not Resolved]
  - Blood pressure increased [Unknown]
  - Anger [Unknown]
  - Emotional distress [Unknown]

NARRATIVE: CASE EVENT DATE: 20220725
